FAERS Safety Report 8924938 (Version 1)
Quarter: 2012Q4

REPORT INFORMATION
  Report Type: 
  Country: US (occurrence: US)
  Receive Date: 20121126
  Receipt Date: 20121126
  Transmission Date: 20130627
  Serious: Yes (Hospitalization)
  Sender: FDA-Public Use
  Company Number: US-ELI_LILLY_AND_COMPANY-US201211004394

PATIENT
  Age: 74 Year
  Sex: Male

DRUGS (4)
  1. HUMALOG LISPRO [Suspect]
     Indication: TYPE 2 DIABETES MELLITUS
     Dosage: UNK, prn
     Dates: start: 2011
  2. HUMALOG LISPRO [Suspect]
     Dosage: 10 u, single
  3. LANTUS [Concomitant]
     Dosage: 18 u, each evening
  4. PREDNISONE [Concomitant]
     Indication: CHRONIC OBSTRUCTIVE PULMONARY DISEASE

REACTIONS (3)
  - Implantable defibrillator insertion [Recovered/Resolved]
  - Blood glucose increased [Recovering/Resolving]
  - Bronchitis [Unknown]
